FAERS Safety Report 17848350 (Version 4)
Quarter: 2020Q2

REPORT INFORMATION
  Report Type: Report from Study
  Country: None (occurrence: BE)
  Receive Date: 20200602
  Receipt Date: 20200625
  Transmission Date: 20200714
  Serious: Yes (Hospitalization)
  Sender: FDA-Public Use
  Company Number: BE-ABBVIE-20K-013-3424140-00

PATIENT
  Sex: Female
  Weight: 80 kg

DRUGS (13)
  1. DUODOPA [Suspect]
     Active Substance: CARBIDOPA\LEVODOPA
     Dosage: MD=3ML, CD=2.1ML/HR DURING 16HRS, ED=1.5ML
     Route: 050
     Dates: start: 20200210, end: 2020
  2. MYSOLINE [Concomitant]
     Active Substance: PRIMIDONE
     Indication: PRODUCT USED FOR UNKNOWN INDICATION
  3. LYRICA [Concomitant]
     Active Substance: PREGABALIN
     Indication: PRODUCT USED FOR UNKNOWN INDICATION
  4. DUODOPA [Suspect]
     Active Substance: CARBIDOPA\LEVODOPA
     Dosage: MD=3ML, CD=3.1ML/HR DURING 16HRS, ED=1.5ML
     Route: 050
     Dates: start: 20190123, end: 20190219
  5. TRADONAL [Concomitant]
     Active Substance: TRAMADOL HYDROCHLORIDE
     Indication: PRODUCT USED FOR UNKNOWN INDICATION
  6. DUODOPA [Suspect]
     Active Substance: CARBIDOPA\LEVODOPA
     Indication: PARKINSON^S DISEASE
     Route: 050
     Dates: start: 20180604, end: 20190123
  7. DUODOPA [Suspect]
     Active Substance: CARBIDOPA\LEVODOPA
     Dosage: MD=3ML, CD=3.1ML/HR DURING 16HRS, ED=1.5ML
     Route: 050
     Dates: start: 20200528, end: 20200623
  8. LORMETAZEPAM [Concomitant]
     Active Substance: LORMETAZEPAM
     Indication: PRODUCT USED FOR UNKNOWN INDICATION
  9. REDOMEX [Concomitant]
     Active Substance: AMITRIPTYLINE HYDROCHLORIDE
     Indication: PRODUCT USED FOR UNKNOWN INDICATION
  10. DUODOPA [Suspect]
     Active Substance: CARBIDOPA\LEVODOPA
     Dosage: MD=3ML, CD=3.3ML/HR DURING 16HRS, ED=1.5ML
     Route: 050
     Dates: start: 20200623
  11. DUODOPA [Suspect]
     Active Substance: CARBIDOPA\LEVODOPA
     Dosage: DOSES CONTINUOUSLY MONITORED AND ADAPTED
     Route: 050
     Dates: start: 20190219, end: 20200410
  12. DUODOPA [Suspect]
     Active Substance: CARBIDOPA\LEVODOPA
     Dosage: MD=3ML, CD=3.1ML/HR DURING 16HRS, ED=1.5ML
     Route: 050
     Dates: start: 20200410, end: 20200528
  13. DAFALGAN [Concomitant]
     Active Substance: ACETAMINOPHEN
     Indication: PRODUCT USED FOR UNKNOWN INDICATION

REACTIONS (12)
  - Gastroenteritis [Unknown]
  - C-reactive protein increased [Unknown]
  - Abdominal pain upper [Unknown]
  - Device difficult to use [Unknown]
  - Device dislocation [Unknown]
  - Stoma site pain [Unknown]
  - Stoma site discharge [Unknown]
  - Stoma site erythema [Unknown]
  - Infection [Unknown]
  - Underdose [Unknown]
  - Off label use [Not Recovered/Not Resolved]
  - Incorrect route of product administration [Unknown]
